FAERS Safety Report 14597435 (Version 4)
Quarter: 2018Q3

REPORT INFORMATION
  Report Type: Spontaneous
  Country: US (occurrence: US)
  Receive Date: 20180305
  Receipt Date: 20180803
  Transmission Date: 20181010
  Serious: Yes (Other)
  Sender: FDA-Public Use
  Company Number: US-RECKITT BENCKISER HEALTHCARE INT LIMITED-RB-82750-2018

PATIENT
  Age: 62 Year
  Sex: Male
  Weight: 83 kg

DRUGS (17)
  1. MUCINEX [Suspect]
     Active Substance: GUAIFENESIN
     Indication: INFLUENZA
     Dosage: 600 MG, SINGLE
     Route: 048
     Dates: start: 20180219
  2. VITAMIN D                          /00107901/ [Concomitant]
     Active Substance: ERGOCALCIFEROL
     Indication: PRODUCT USED FOR UNKNOWN INDICATION
     Dosage: 5000 IU, QD
     Route: 065
  3. FISH OIL [Concomitant]
     Active Substance: FISH OIL
     Indication: PRODUCT USED FOR UNKNOWN INDICATION
     Dosage: UNK
     Route: 065
  4. VITAMIN D3 [Concomitant]
     Active Substance: CHOLECALCIFEROL
     Indication: PRODUCT USED FOR UNKNOWN INDICATION
     Dosage: 1000 DF, QD
     Route: 048
     Dates: end: 20180408
  5. PROPOFOL. [Concomitant]
     Active Substance: PROPOFOL
     Dosage: 40 MG, UNK
     Route: 042
     Dates: start: 20180410
  6. PROSCAR [Concomitant]
     Active Substance: FINASTERIDE
     Indication: PRODUCT USED FOR UNKNOWN INDICATION
     Dosage: UNK
     Route: 065
  7. LIDOCAINE. [Concomitant]
     Active Substance: LIDOCAINE
     Indication: PRODUCT USED FOR UNKNOWN INDICATION
     Dosage: UNK
     Route: 042
     Dates: start: 20180410
  8. XANAX [Concomitant]
     Active Substance: ALPRAZOLAM
     Indication: ANXIETY
     Dosage: 1 DF, TID, AS NEEDED
     Route: 048
     Dates: end: 20180408
  9. LUNESTA [Concomitant]
     Active Substance: ESZOPICLONE
     Indication: PRODUCT USED FOR UNKNOWN INDICATION
     Dosage: 1 DF, QD, AT BEDTIME
     Route: 048
     Dates: end: 20180408
  10. PRILOSEC [Concomitant]
     Active Substance: OMEPRAZOLE MAGNESIUM
     Indication: PRODUCT USED FOR UNKNOWN INDICATION
     Dosage: 20 MG, QD
     Route: 048
  11. LACTATED RINGERS SOLUTION [Concomitant]
     Active Substance: CALCIUM CHLORIDE\POTASSIUM CHLORIDE\SODIUM CHLORIDE\SODIUM LACTATE
     Indication: PRODUCT USED FOR UNKNOWN INDICATION
     Dosage: UNK
     Route: 042
     Dates: start: 20180409
  12. LACTATED RINGERS SOLUTION [Concomitant]
     Active Substance: CALCIUM CHLORIDE\POTASSIUM CHLORIDE\SODIUM CHLORIDE\SODIUM LACTATE
     Dosage: 300 ML, UNK
     Route: 042
     Dates: start: 20180410
  13. ZETIA [Concomitant]
     Active Substance: EZETIMIBE
     Indication: PRODUCT USED FOR UNKNOWN INDICATION
     Dosage: UNK, PRN
     Route: 065
  14. MUCINEX [Suspect]
     Active Substance: GUAIFENESIN
     Indication: SINUSITIS
  15. PROPOFOL. [Concomitant]
     Active Substance: PROPOFOL
     Indication: PRODUCT USED FOR UNKNOWN INDICATION
     Dosage: 120 MG, UNK
     Route: 042
     Dates: start: 20180410
  16. PROPOFOL. [Concomitant]
     Active Substance: PROPOFOL
     Dosage: 40 MG, UNK
     Route: 042
     Dates: start: 20180410
  17. PROPOFOL. [Concomitant]
     Active Substance: PROPOFOL
     Dosage: 40 MG, UNK
     Route: 042
     Dates: start: 20180410

REACTIONS (8)
  - Oesophagitis [Unknown]
  - Dysphagia [Unknown]
  - Choking [Recovered/Resolved]
  - Hyperlipidaemia [Unknown]
  - Gastritis [Unknown]
  - Product use in unapproved indication [Unknown]
  - Gastrooesophageal reflux disease [Unknown]
  - Foreign body in respiratory tract [Recovered/Resolved]

NARRATIVE: CASE EVENT DATE: 201802
